FAERS Safety Report 9929218 (Version 5)
Quarter: 2017Q4

REPORT INFORMATION
  Report Type: Spontaneous
  Country: US (occurrence: US)
  Receive Date: 20140227
  Receipt Date: 20171013
  Transmission Date: 20180321
  Serious: Yes (Life-Threatening, Hospitalization, Disabling, Other)
  Sender: FDA-Public Use
  Company Number: US-BAYER-2014-029298

PATIENT
  Age: 41 Year
  Sex: Female
  Weight: 56.69 kg

DRUGS (25)
  1. YAZ [Suspect]
     Active Substance: DROSPIRENONE\ETHINYL ESTRADIOL
     Indication: CONTRACEPTION
     Dosage: UNK
     Dates: start: 20070911, end: 20080809
  2. OCELLA [Suspect]
     Active Substance: DROSPIRENONE\ETHINYL ESTRADIOL
     Indication: CONTRACEPTION
     Dosage: 3-0.02 DAILY
     Dates: start: 20081018, end: 20090817
  3. POTASSIUM CHLORIDE. [Concomitant]
     Active Substance: POTASSIUM CHLORIDE
     Dosage: 20 MEQ, UNASOGASTRIC Q12,
  4. BOTOX [Concomitant]
     Active Substance: ONABOTULINUMTOXINA
     Indication: CONVULSION PROPHYLAXIS
     Dosage: UNK
     Dates: start: 2014
  5. DOLOPHINE [Concomitant]
     Active Substance: METHADONE HYDROCHLORIDE
     Dosage: 5 MG, NASOGASTRIC Q6
  6. MORPHINE [Concomitant]
     Active Substance: MORPHINE
  7. GIANVI [Suspect]
     Active Substance: DROSPIRENONE\ETHINYL ESTRADIOL
     Indication: CONTRACEPTION
     Dosage: 3-0.92 DAILY
     Dates: start: 20100702, end: 201112
  8. BEYAZ [Suspect]
     Active Substance: DROSPIRENONE\ETHINYL ESTRADIOL\LEVOMEFOLATE CALCIUM
     Indication: CONTRACEPTION
     Dosage: DAILY
     Dates: start: 20111227, end: 20121030
  9. PHENOL. [Concomitant]
     Active Substance: PHENOL
     Dosage: UNK
     Dates: start: 2014
  10. YAZ [Suspect]
     Active Substance: DROSPIRENONE\ETHINYL ESTRADIOL
     Indication: CONTRACEPTION
     Dosage: UNK
     Dates: start: 20090923, end: 20100510
  11. ZYRTEC [Concomitant]
     Active Substance: CETIRIZINE HYDROCHLORIDE
  12. ADIPEX-P [Concomitant]
     Active Substance: PHENTERMINE HYDROCHLORIDE
     Indication: WEIGHT DECREASED
     Dosage: 37.5 MG, EVERY DAY AT 9:00AM
     Route: 048
  13. LISINOPRIL. [Concomitant]
     Active Substance: LISINOPRIL
     Indication: BLOOD PRESSURE ABNORMAL
     Dosage: UNK
     Dates: start: 20121030
  14. ZOLPIDEM [Concomitant]
     Active Substance: ZOLPIDEM\ZOLPIDEM TARTRATE
     Dosage: 10 MG, HS
     Route: 048
  15. MANNITOL. [Concomitant]
     Active Substance: MANNITOL
     Indication: CEREBRAL OEDEMA MANAGEMENT
     Dosage: 25 MG, UNK
  16. KEPPRA [Concomitant]
     Active Substance: LEVETIRACETAM
     Indication: CONVULSION PROPHYLAXIS
     Dosage: 1 G, NASOGASTRIC Q12
     Dates: start: 2012, end: 201407
  17. PEPCID [Concomitant]
     Active Substance: FAMOTIDINE
     Dosage: 20 MG, NASOGASTRIC
  18. ORAL CONTRACEPTIVE NOS [Concomitant]
     Active Substance: UNSPECIFIED INGREDIENT
  19. COLACE [Concomitant]
     Active Substance: DOCUSATE SODIUM
     Dosage: 10 MG,  NASOGASTRIC Q 12
  20. LACOSAMIDE. [Concomitant]
     Active Substance: LACOSAMIDE
     Indication: CONVULSION PROPHYLAXIS
     Dosage: 200 MG, NASOGASTRIC Q12
     Dates: start: 201407
  21. NICARDIPINE [Concomitant]
     Active Substance: NICARDIPINE
     Indication: BLOOD PRESSURE SYSTOLIC ABNORMAL
  22. TYLENOL WITH CODEINE [Concomitant]
     Active Substance: ACETAMINOPHEN\CODEINE PHOSPHATE
     Dosage: UNK
     Dates: start: 20121030
  23. PHENTERMINE. [Concomitant]
     Active Substance: PHENTERMINE
     Dosage: UNK
     Dates: start: 20120831, end: 20121030
  24. ZOFRAN [Concomitant]
     Active Substance: ONDANSETRON HYDROCHLORIDE
  25. NORVASC [Concomitant]
     Active Substance: AMLODIPINE BESYLATE
     Indication: BLOOD PRESSURE ABNORMAL
     Dosage: UNK
     Dates: start: 20121030

REACTIONS (23)
  - Intracranial venous sinus thrombosis [None]
  - Jugular vein thrombosis [None]
  - Brain injury [None]
  - Dysstasia [None]
  - Anhedonia [None]
  - Cognitive disorder [None]
  - Diplopia [None]
  - Gait inability [None]
  - Injury [None]
  - Musculoskeletal disorder [None]
  - Cerebral haemorrhage [None]
  - Impaired work ability [None]
  - Thrombosis [None]
  - Speech disorder [None]
  - Depression [None]
  - Transverse sinus thrombosis [None]
  - Embolic stroke [None]
  - Loss of personal independence in daily activities [None]
  - Cerebral artery thrombosis [None]
  - Agraphia [None]
  - Deformity [None]
  - Pain [None]
  - Dysphagia [None]

NARRATIVE: CASE EVENT DATE: 20121030
